FAERS Safety Report 7381747-4 (Version None)
Quarter: 2011Q1

REPORT INFORMATION
  Report Type: 
  Country: None (occurrence: None)
  Receive Date: 20110329
  Receipt Date: 20101021
  Transmission Date: 20110831
  Serious: Yes (Hospitalization, Other)
  Sender: FDA-Public Use
  Company Number: US-BAYER-201021600NA

PATIENT
  Sex: Female
  Weight: 58.503 kg

DRUGS (5)
  1. NSAID'S [Concomitant]
  2. RESPIRATORY SYSTEM [Concomitant]
  3. YASMIN [Suspect]
     Indication: MENSTRUATION IRREGULAR
     Dosage: UNK UNK, QD
     Route: 048
     Dates: start: 20050506, end: 20060223
  4. MULTI-VITAMIN [Concomitant]
  5. NASACORT [Concomitant]

REACTIONS (3)
  - PULMONARY EMBOLISM [None]
  - NECK PAIN [None]
  - JUGULAR VEIN THROMBOSIS [None]
